FAERS Safety Report 16560599 (Version 3)
Quarter: 2019Q3

REPORT INFORMATION
  Report Type: Spontaneous
  Country: US (occurrence: US)
  Receive Date: 20190711
  Receipt Date: 20190821
  Transmission Date: 20191004
  Serious: Yes (Hospitalization)
  Sender: FDA-Public Use
  Company Number: US-ROCHE-2353108

PATIENT
  Age: 9 Year
  Sex: Male

DRUGS (3)
  1. NUTROPIN AQ [Suspect]
     Active Substance: SOMATROPIN
     Indication: PRODUCT USED FOR UNKNOWN INDICATION
     Route: 058
     Dates: start: 20190517
  2. CELLCEPT [Suspect]
     Active Substance: MYCOPHENOLATE MOFETIL\MYCOPHENOLATE MOFETIL HYDROCHLORIDE
     Indication: PRODUCT USED FOR UNKNOWN INDICATION
     Route: 065
     Dates: start: 20151001
  3. TACROLIMUS. [Concomitant]
     Active Substance: TACROLIMUS
     Route: 065
     Dates: start: 20150601

REACTIONS (1)
  - Sepsis [Unknown]

NARRATIVE: CASE EVENT DATE: 20190515
